FAERS Safety Report 9779744 (Version 2)
Quarter: 2014Q1

REPORT INFORMATION
  Report Type: Report from Study
  Country: US (occurrence: US)
  Receive Date: 20131223
  Receipt Date: 20140211
  Transmission Date: 20141002
  Serious: Yes (Hospitalization)
  Sender: FDA-Public Use
  Company Number: US-ROCHE-1318065

PATIENT
  Age: 74 Year
  Sex: Female
  Weight: 53.4 kg

DRUGS (26)
  1. MPDL3280A [Suspect]
     Indication: NEOPLASM
     Dosage: DATE OF MOST RECENT DOSE PRIOR TO SAE ONSET: 01/MAY/2013
     Route: 042
     Dates: start: 20121120
  2. BEVACIZUMAB [Suspect]
     Indication: NEOPLASM MALIGNANT
     Dosage: DATE OF MOST RECENT DOSE PRIOR TO SAE ONSET: 01/MAY/2013
     Route: 042
     Dates: start: 20121106
  3. LOSARTAN [Concomitant]
     Indication: HYPERTENSION
     Route: 048
     Dates: end: 201303
  4. LOSARTAN [Concomitant]
     Route: 048
     Dates: start: 201303
  5. ZANTAC [Concomitant]
     Indication: GASTRITIS PROPHYLAXIS
     Route: 048
  6. REGLAN [Concomitant]
     Route: 048
  7. SYNTHYROID [Concomitant]
     Indication: HYPOTHYROIDISM
     Route: 048
  8. REMERON [Concomitant]
     Indication: INSOMNIA
     Route: 048
     Dates: end: 20130206
  9. KEFLEX [Concomitant]
     Indication: DEVICE RELATED INFECTION
     Route: 048
     Dates: start: 20121112, end: 20130320
  10. ZOMETA [Concomitant]
     Indication: METASTASES TO BONE
     Route: 042
     Dates: start: 20121106
  11. AZITHROMYCIN [Concomitant]
     Indication: PLEURAL EFFUSION
     Route: 048
     Dates: start: 20121022
  12. ACETAMINOPHEN [Concomitant]
     Indication: PREMEDICATION
     Route: 048
     Dates: start: 20121106
  13. BENADRYL (UNITED STATES) [Concomitant]
     Indication: PREMEDICATION
     Route: 048
     Dates: start: 20121106
  14. CLARITHROMYCIN [Concomitant]
     Indication: DEVICE RELATED INFECTION
     Route: 048
     Dates: start: 20121112, end: 20130320
  15. LEVOQUIN [Concomitant]
     Indication: DEVICE RELATED INFECTION
     Route: 048
     Dates: start: 20121112, end: 20130320
  16. DOXYCYCLINE [Concomitant]
     Indication: DEVICE RELATED INFECTION
     Route: 048
     Dates: start: 20121114, end: 20130320
  17. MAGNESIUM OXIDE [Concomitant]
     Indication: HYPOMAGNESAEMIA
     Route: 048
     Dates: start: 20130227
  18. NORVASC [Concomitant]
     Indication: HYPERTENSION
     Route: 048
     Dates: start: 20130320, end: 201304
  19. ATIVAN [Concomitant]
     Indication: ANXIETY
     Route: 048
     Dates: start: 20130206, end: 20130711
  20. LASIX [Concomitant]
     Indication: OEDEMA PERIPHERAL
     Route: 048
     Dates: start: 201304
  21. HYDROCHLOROTHIAZIDE [Concomitant]
     Indication: HYPERTENSION
     Route: 048
     Dates: start: 201304
  22. VICODIN [Concomitant]
     Indication: BONE PAIN
     Route: 048
     Dates: start: 20130514
  23. MIRALAX [Concomitant]
     Indication: CONSTIPATION
     Route: 048
     Dates: start: 20130514, end: 20130604
  24. DEXAMETHASONE [Concomitant]
     Indication: NAUSEA
     Route: 048
     Dates: start: 20130608
  25. XANAX [Concomitant]
     Indication: ANXIETY
     Route: 048
     Dates: start: 20130711
  26. LISINOPRIL [Concomitant]
     Indication: HYPERTENSION
     Route: 048
     Dates: start: 20130227, end: 20130320

REACTIONS (2)
  - Renal failure acute [Recovered/Resolved]
  - Dyspnoea [Recovered/Resolved]
